FAERS Safety Report 10717971 (Version 1)
Quarter: 2015Q1

REPORT INFORMATION
  Report Type: Spontaneous
  Country: US (occurrence: US)
  Receive Date: 20150116
  Receipt Date: 20150116
  Transmission Date: 20150721
  Serious: Yes (Other)
  Sender: FDA-Public Use
  Company Number: US-ASTRAZENECA-2015SE03243

PATIENT
  Age: 47 Year
  Sex: Male
  Weight: 71.7 kg

DRUGS (1)
  1. NEXIUM [Suspect]
     Active Substance: ESOMEPRAZOLE MAGNESIUM
     Indication: HIATUS HERNIA
     Route: 048
     Dates: start: 2005

REACTIONS (16)
  - Visual acuity reduced [Unknown]
  - Claustrophobia [Unknown]
  - Somnolence [Not Recovered/Not Resolved]
  - Paraesthesia [Not Recovered/Not Resolved]
  - Abdominal distension [Unknown]
  - Chest pain [Unknown]
  - Haemoptysis [Recovered/Resolved]
  - Road traffic accident [Unknown]
  - Abdominal pain [Unknown]
  - Muscle spasms [Unknown]
  - Panic attack [Unknown]
  - Diarrhoea [Unknown]
  - Hypoaesthesia [Unknown]
  - Product use issue [Not Recovered/Not Resolved]
  - Asthenia [Not Recovered/Not Resolved]
  - Anxiety [Unknown]

NARRATIVE: CASE EVENT DATE: 2007
